FAERS Safety Report 5940926-0 (Version None)
Quarter: 2008Q4

REPORT INFORMATION
  Report Type: 
  Country: None (occurrence: None)
  Receive Date: 20081031
  Receipt Date: 20081017
  Transmission Date: 20090506
  Serious: Yes (Other)
  Sender: FDA-Public Use
  Company Number: 2008S1018872

PATIENT
  Age: 57 Year
  Sex: Female

DRUGS (2)
  1. SERTRALINE [Suspect]
     Indication: SOMATISATION DISORDER
     Dosage: 50 ;
  2. DIPIPERON (PIPAMPERONE HYDROCHLORIDE) [Suspect]
     Indication: SOMATISATION DISORDER
     Dosage: 1 DF; DAILY;
     Dates: start: 20060601, end: 20080914

REACTIONS (3)
  - NIGHTMARE [None]
  - NOCTURIA [None]
  - RESTLESSNESS [None]
